FAERS Safety Report 13805747 (Version 2)
Quarter: 2018Q1

REPORT INFORMATION
  Report Type: Spontaneous
  Country: US (occurrence: US)
  Receive Date: 20170728
  Receipt Date: 20180124
  Transmission Date: 20180508
  Serious: No
  Sender: FDA-Public Use
  Company Number: US-AMGEN-USASP2017108123

PATIENT
  Age: 57 Year
  Sex: Male

DRUGS (2)
  1. REPATHA [Suspect]
     Active Substance: EVOLOCUMAB
     Indication: PRODUCT USED FOR UNKNOWN INDICATION
     Dosage: 140 MG, Q2WK
     Route: 065
     Dates: start: 201511
  2. PRALUENT [Concomitant]
     Active Substance: ALIROCUMAB

REACTIONS (5)
  - Injection site vesicles [Unknown]
  - Sinus disorder [Recovered/Resolved]
  - Injection site reaction [Unknown]
  - Rash [Recovered/Resolved]
  - Rhinorrhoea [Recovered/Resolved]
